FAERS Safety Report 9034015 (Version 1)
Quarter: 2013Q1

REPORT INFORMATION
  Report Type: Spontaneous
  Country: US (occurrence: None)
  Receive Date: 20130116
  Receipt Date: 20130116
  Transmission Date: 20140127
  Serious: No
  Sender: FDA-Public Use
  Company Number: None

PATIENT
  Age: 68 Year
  Sex: Male
  Weight: 102.06 kg

DRUGS (5)
  1. HUMIRA 40MG SC QOW [Suspect]
     Indication: RHEUMATOID ARTHRITIS
     Dosage: 40MG  SC
     Route: 058
     Dates: start: 2005
  2. ALENDRONATE [Concomitant]
  3. ALEVE [Concomitant]
  4. PROTONIX [Concomitant]
  5. AMLODIPINE [Concomitant]

REACTIONS (1)
  - Bladder disorder [None]
